FAERS Safety Report 5363088-X (Version None)
Quarter: 2007Q2

REPORT INFORMATION
  Report Type: 
  Country: None (occurrence: None)
  Receive Date: 20070615
  Receipt Date: 20070604
  Transmission Date: 20071010
  Serious: Yes (Death, Life-Threatening, Hospitalization)
  Sender: FDA-Public Use
  Company Number: 2005EU001227

PATIENT
  Age: 59 Year
  Sex: Male

DRUGS (10)
  1. TACROLIMUS [Suspect]
     Indication: LIVER TRANSPLANT
     Dosage: 3.00 MG, UID/QD, ORAL
     Route: 048
     Dates: start: 20041213, end: 20050420
  2. PREDNISONE TAB [Suspect]
     Indication: LIVER TRANSPLANT
     Dosage: 10.00 MG, UID/QD,
     Dates: start: 20041213
  3. METHYLPREDNISOLONE [Suspect]
     Indication: LIVER TRANSPLANT
     Dosage: 500 MG, UID/ QD
     Dates: start: 20050412
  4. INSULIN (INSULIN) [Concomitant]
  5. MORPHINE [Concomitant]
  6. PANTOPRAZOLE SODIUM [Concomitant]
  7. RAPAMYCIN (SIROLIMUS) [Concomitant]
  8. PIPERACILLIN [Concomitant]
  9. TAZOBACTAM [Concomitant]
  10. CORTICOSTEROID [Concomitant]

REACTIONS (7)
  - ANGIODYSPLASIA [None]
  - HUMAN HERPESVIRUS 8 INFECTION [None]
  - LIVER TRANSPLANT REJECTION [None]
  - MENINGITIS CRYPTOCOCCAL [None]
  - MULTI-ORGAN FAILURE [None]
  - PRIMARY EFFUSION LYMPHOMA [None]
  - RECTAL HAEMORRHAGE [None]
